FAERS Safety Report 13726380 (Version 1)
Quarter: 2017Q3

REPORT INFORMATION
  Report Type: Spontaneous
  Country: US (occurrence: US)
  Receive Date: 20170707
  Receipt Date: 20170707
  Transmission Date: 20171127
  Serious: Yes (Death, Disabling)
  Sender: FDA-Public Use
  Company Number: None

PATIENT
  Age: 62 Year
  Sex: Male
  Weight: 85.5 kg

DRUGS (8)
  1. AFINITOR [Suspect]
     Active Substance: EVEROLIMUS
     Indication: RENAL CANCER
     Dosage: ?          OTHER DOSE:MG;?
     Route: 048
     Dates: start: 20170502, end: 20170628
  2. OMEPRAZOLE. [Concomitant]
     Active Substance: OMEPRAZOLE
  3. ASPIRIN LOW DOSE [Concomitant]
     Active Substance: ASPIRIN
  4. SENSIPAR [Concomitant]
     Active Substance: CINACALCET HYDROCHLORIDE
  5. AFINITOR [Suspect]
     Active Substance: EVEROLIMUS
     Indication: METASTASIS
     Dosage: ?          OTHER DOSE:MG;?
     Route: 048
     Dates: start: 20170502, end: 20170628
  6. WARFARIN [Concomitant]
     Active Substance: WARFARIN
  7. METOPROLOL. [Concomitant]
     Active Substance: METOPROLOL
  8. SIMVASTATIN. [Concomitant]
     Active Substance: SIMVASTATIN

REACTIONS (1)
  - Death [None]

NARRATIVE: CASE EVENT DATE: 20170701
